FAERS Safety Report 7929846-X (Version None)
Quarter: 2011Q4

REPORT INFORMATION
  Report Type: 
  Country: None (occurrence: None)
  Receive Date: 20111121
  Receipt Date: 20111114
  Transmission Date: 20120403
  Serious: No
  Sender: FDA-Public Use
  Company Number: US-PFIZER INC-2011275070

PATIENT
  Sex: Female

DRUGS (1)
  1. NICOTROL [Suspect]
     Dosage: UNK

REACTIONS (4)
  - OROPHARYNGEAL PAIN [None]
  - DRUG INEFFECTIVE [None]
  - RHINORRHOEA [None]
  - IRRITABILITY [None]
